FAERS Safety Report 10756145 (Version 1)
Quarter: 2015Q1

REPORT INFORMATION
  Report Type: Report from Study
  Country: IT (occurrence: IT)
  Receive Date: 20150202
  Receipt Date: 20150202
  Transmission Date: 20150721
  Serious: Yes (Hospitalization)
  Sender: FDA-Public Use
  Company Number: IT-ABBVIE-15P-083-1339171-00

PATIENT
  Sex: Male
  Weight: 78 kg

DRUGS (1)
  1. DUODOPA [Suspect]
     Active Substance: CARBIDOPA\LEVODOPA
     Indication: PRODUCT USED FOR UNKNOWN INDICATION
     Dosage: 26 ML/H, CONTINUOUS
     Route: 050
     Dates: start: 20130507

REACTIONS (4)
  - Constipation [Recovered/Resolved]
  - Intestinal stenosis [Recovered/Resolved]
  - Gastrointestinal inflammation [Recovered/Resolved]
  - Weight increased [Unknown]

NARRATIVE: CASE EVENT DATE: 20140520
